FAERS Safety Report 6292111-3 (Version None)
Quarter: 2009Q3

REPORT INFORMATION
  Report Type: 
  Country: None (occurrence: None)
  Receive Date: 20090731
  Receipt Date: 20090720
  Transmission Date: 20100115
  Serious: Yes (Hospitalization)
  Sender: FDA-Public Use
  Company Number: FR-WYE-H10294709

PATIENT
  Sex: Male

DRUGS (9)
  1. PANTOPRAZOLE SODIUM [Suspect]
     Indication: GASTROOESOPHAGEAL REFLUX DISEASE
     Route: 048
     Dates: start: 20090302, end: 20090311
  2. POLERY [Suspect]
     Indication: LUNG INFECTION
     Dosage: 3 TABLESPOONS, FREQUENCY UNSPECIFIED
     Route: 048
     Dates: start: 20090302, end: 20090304
  3. PREVISCAN [Concomitant]
     Dosage: 0.5 DOSAGE FORMS, FREQUENCY UNSPECIFIED
     Route: 048
  4. BIPERIDYS [Suspect]
     Indication: GASTROOESOPHAGEAL REFLUX DISEASE
     Dosage: 3 DOSAGE FORMS
     Route: 055
     Dates: start: 20090302, end: 20090304
  5. MAXIDROL [Concomitant]
     Indication: CONJUNCTIVITIS
     Dosage: UNSPECIFIED
     Route: 031
     Dates: start: 20090306
  6. ZANIDIP [Concomitant]
     Route: 065
     Dates: start: 20020920
  7. KERLONE [Concomitant]
     Dosage: 20 MG, FREQUENCY UNSPECIFIED
     Route: 065
     Dates: start: 20051223
  8. THERALENE [Suspect]
     Dosage: UNSPECIFIED
     Route: 065
     Dates: start: 20090211, end: 20090309
  9. TRIATEC [Concomitant]
     Dosage: 5 MG, FREQUENCY UNSPECIFIED
     Route: 048
     Dates: start: 20020920

REACTIONS (1)
  - LEUKOCYTOCLASTIC VASCULITIS [None]
